FAERS Safety Report 5464294-6 (Version None)
Quarter: 2007Q3

REPORT INFORMATION
  Report Type: 
  Country: None (occurrence: None)
  Receive Date: 20070921
  Receipt Date: 20070918
  Transmission Date: 20080115
  Serious: Yes (Hospitalization)
  Sender: FDA-Public Use
  Company Number: B0487173A

PATIENT
  Age: 64 Year
  Sex: Male

DRUGS (6)
  1. CEFAMEZIN [Suspect]
     Indication: DRUG USE FOR UNKNOWN INDICATION
     Dosage: 2G PER DAY
     Route: 042
     Dates: start: 20070905, end: 20070906
  2. LANSOPRAZOLE [Concomitant]
     Route: 048
  3. ACECOL [Concomitant]
     Route: 048
  4. AMLODIPINE [Concomitant]
     Route: 048
  5. LIVALO [Concomitant]
     Route: 048
  6. FLIVAS [Concomitant]
     Route: 048

REACTIONS (4)
  - EOSINOPHIL COUNT DECREASED [None]
  - LABORATORY TEST INTERFERENCE [None]
  - PLATELET COUNT DECREASED [None]
  - WHITE BLOOD CELL COUNT INCREASED [None]
